FAERS Safety Report 11889589 (Version 1)
Quarter: 2016Q1

REPORT INFORMATION
  Report Type: Report from Study
  Country: IN (occurrence: IN)
  Receive Date: 20160105
  Receipt Date: 20160105
  Transmission Date: 20160526
  Serious: Yes (Other)
  Sender: FDA-Public Use
  Company Number: IN-ROCHE-1671490

PATIENT
  Age: 51 Year
  Sex: Female

DRUGS (3)
  1. HERCLON [Suspect]
     Active Substance: TRASTUZUMAB
     Indication: BREAST CANCER
     Route: 042
     Dates: start: 201509
  2. XELODA [Concomitant]
     Active Substance: CAPECITABINE
     Indication: BREAST CANCER
     Dosage: 6 TABLETS IN A DAY FOR 14 DAYS.
     Route: 048
     Dates: start: 201510
  3. PERJETA [Suspect]
     Active Substance: PERTUZUMAB
     Indication: BREAST CANCER
     Route: 042
     Dates: start: 201510

REACTIONS (11)
  - Abdominal pain upper [Recovering/Resolving]
  - Abasia [Recovering/Resolving]
  - Diarrhoea [Recovering/Resolving]
  - Bedridden [Recovering/Resolving]
  - Feeding disorder [Recovering/Resolving]
  - Gastritis erosive [Unknown]
  - Drug ineffective [Unknown]
  - Cough [Recovering/Resolving]
  - Nausea [Recovering/Resolving]
  - Disease progression [Recovering/Resolving]
  - Pyrexia [Recovering/Resolving]

NARRATIVE: CASE EVENT DATE: 201510
